FAERS Safety Report 9604404 (Version 6)
Quarter: 2015Q4

REPORT INFORMATION
  Report Type: Report from Study
  Country: US (occurrence: US)
  Receive Date: 20131008
  Receipt Date: 20151112
  Transmission Date: 20160305
  Serious: Yes (Hospitalization, Other)
  Sender: FDA-Public Use
  Company Number: US-SA-2013SA097085

PATIENT
  Age: 70 Year
  Sex: Female
  Weight: 72.57 kg

DRUGS (8)
  1. LIVALO [Concomitant]
     Active Substance: PITAVASTATIN CALCIUM
  2. CYMBALTA [Concomitant]
     Active Substance: DULOXETINE HYDROCHLORIDE
     Route: 065
  3. LANTUS [Suspect]
     Active Substance: INSULIN GLARGINE
     Indication: DIABETES MELLITUS
     Dosage: DOSE:110 UNIT(S)
     Route: 058
  4. LANTUS [Suspect]
     Active Substance: INSULIN GLARGINE
     Indication: DIABETES MELLITUS
     Dosage: DOSE:55 UNIT(S)
     Route: 058
  5. PROTONIX [Concomitant]
     Active Substance: PANTOPRAZOLE SODIUM
     Indication: GASTRIC DISORDER
     Route: 065
  6. ALLEGRA [Concomitant]
     Active Substance: FEXOFENADINE HYDROCHLORIDE
     Indication: HYPERSENSITIVITY
     Route: 065
  7. ANTIDEPRESSANTS [Concomitant]
     Active Substance: UNSPECIFIED INGREDIENT
  8. LOPRESSOR [Concomitant]
     Active Substance: METOPROLOL TARTRATE
     Indication: HYPERTENSION
     Route: 065
     Dates: start: 201009

REACTIONS (14)
  - Ovarian cyst [Recovered/Resolved]
  - Drug administration error [Unknown]
  - Knee arthroplasty [Unknown]
  - Cardiac operation [Unknown]
  - Eye allergy [Recovered/Resolved]
  - Visual impairment [Recovered/Resolved]
  - Eye swelling [Recovered/Resolved]
  - Hearing impaired [Unknown]
  - Eyelid ptosis [Recovered/Resolved]
  - Gastric disorder [Unknown]
  - Hysterectomy [Unknown]
  - Cataract operation [Unknown]
  - Gastric ulcer haemorrhage [Unknown]
  - Sinusitis [Unknown]

NARRATIVE: CASE EVENT DATE: 20100927
